FAERS Safety Report 4778446-1 (Version None)
Quarter: 2005Q3

REPORT INFORMATION
  Report Type: 
  Country: None (occurrence: None)
  Receive Date: 20050926
  Receipt Date: 20050914
  Transmission Date: 20060218
  Serious: Yes (Life-Threatening)
  Sender: FDA-Public Use
  Company Number: 2005AP04925

PATIENT
  Age: 42 Year
  Sex: Female

DRUGS (4)
  1. NOLVADEX [Suspect]
     Indication: BREAST CANCER
     Route: 048
  2. CYCLOPHOSPHAMIDE [Concomitant]
     Indication: BREAST CANCER
     Dosage: FOUR COURSES
  3. METHOTREXATE [Concomitant]
     Indication: BREAST CANCER
     Dosage: FOUR COURSES
  4. FLUOROURACIL [Concomitant]
     Indication: BREAST CANCER
     Dosage: FOUR COURSES

REACTIONS (5)
  - HEADACHE [None]
  - LUNG NEOPLASM MALIGNANT [None]
  - METASTASES TO CENTRAL NERVOUS SYSTEM [None]
  - METASTASES TO LUNG [None]
  - NEUROENDOCRINE CARCINOMA [None]
